FAERS Safety Report 5622484-3 (Version None)
Quarter: 2008Q1

REPORT INFORMATION
  Report Type: 
  Country: None (occurrence: None)
  Receive Date: 20080211
  Receipt Date: 20080130
  Transmission Date: 20080703
  Serious: Yes (Hospitalization)
  Sender: FDA-Public Use
  Company Number: FR-PFIZER INC-2008010336

PATIENT
  Age: 53 Year
  Sex: Male

DRUGS (2)
  1. CHANTIX [Suspect]
     Dates: start: 20071020, end: 20080119
  2. DEROXAT [Concomitant]

REACTIONS (1)
  - CORONARY ARTERY INSUFFICIENCY [None]
